FAERS Safety Report 12267521 (Version 1)
Quarter: 2016Q2

REPORT INFORMATION
  Report Type: Report from Study
  Country: JP (occurrence: JP)
  Receive Date: 20160414
  Receipt Date: 20160414
  Transmission Date: 20160815
  Serious: Yes (Other)
  Sender: FDA-Public Use
  Company Number: JP-ASTELLAS-2016JP004161

PATIENT
  Age: 31 Year
  Sex: Female

DRUGS (5)
  1. DIACORT [Suspect]
     Active Substance: DIFLORASONE DIACETATE
     Indication: ECZEMA
     Dosage: PROPER DOSE
     Route: 061
     Dates: start: 201108, end: 201112
  2. MYSER /00115501/ [Suspect]
     Active Substance: CYCLOSERINE
     Indication: ECZEMA
     Dosage: PROPER DOSE
     Route: 061
     Dates: start: 201108, end: 201112
  3. TACROLIMUS. [Suspect]
     Active Substance: TACROLIMUS
     Dosage: UNK UNK, UNKNOWN FREQ.
     Route: 061
     Dates: end: 20120515
  4. ANTEBATE [Suspect]
     Active Substance: BETAMETHASONE DIPROPIONATE
     Indication: ECZEMA
     Dosage: PROPER DOSE
     Route: 061
     Dates: start: 201108, end: 201112
  5. TACROLIMUS. [Suspect]
     Active Substance: TACROLIMUS
     Indication: ECZEMA
     Dosage: PROPER DOSE
     Route: 061
     Dates: start: 201108, end: 201112

REACTIONS (2)
  - Abortion [Unknown]
  - Maternal exposure during pregnancy [Unknown]

NARRATIVE: CASE EVENT DATE: 201112
